FAERS Safety Report 21391922 (Version 1)
Quarter: 2022Q3

REPORT INFORMATION
  Report Type: Report from Study
  Country: MY (occurrence: MY)
  Receive Date: 20220929
  Receipt Date: 20220929
  Transmission Date: 20221027
  Serious: Yes (Hospitalization)
  Sender: FDA-Public Use
  Company Number: MY-JNJFOC-20220340282

PATIENT
  Age: 78 Year
  Sex: Male
  Weight: 50 kg

DRUGS (8)
  1. PLACEBO [Suspect]
     Active Substance: UNSPECIFIED INGREDIENT
     Indication: Prostate cancer
     Dosage: MED KIT NO: 204199
     Route: 048
     Dates: start: 20180628, end: 20201109
  2. PLACEBO [Suspect]
     Active Substance: UNSPECIFIED INGREDIENT
     Indication: Prostate cancer
     Dosage: MED KIT NO: 156989
     Route: 048
     Dates: start: 20180628, end: 20181017
  3. AMLODIPINE [Concomitant]
     Active Substance: AMLODIPINE BESYLATE
     Indication: Hypertension
     Route: 048
     Dates: start: 2011
  4. CALCIUM CARBONATE [Concomitant]
     Active Substance: CALCIUM CARBONATE
     Indication: Prophylaxis
     Route: 048
     Dates: start: 20190919
  5. DULCOLAX (BISACODYL) [Concomitant]
     Active Substance: BISACODYL
     Indication: Rectal haemorrhage
     Route: 048
     Dates: start: 20200521
  6. FERROUS FUMARATE [Concomitant]
     Active Substance: FERROUS FUMARATE
     Indication: Rectal haemorrhage
     Route: 048
     Dates: start: 20200521
  7. FOLATE SODIUM [Concomitant]
     Active Substance: FOLATE SODIUM
     Indication: Increased appetite
     Route: 048
     Dates: start: 20200521
  8. ROCALCITOL [Concomitant]
     Indication: Prophylaxis
     Route: 048
     Dates: start: 20180628

REACTIONS (1)
  - Haematuria [Recovered/Resolved]

NARRATIVE: CASE EVENT DATE: 20220301
